FAERS Safety Report 5670586-8 (Version None)
Quarter: 2008Q1

REPORT INFORMATION
  Report Type: 
  Country: None (occurrence: None)
  Receive Date: 20080313
  Receipt Date: 20080302
  Transmission Date: 20080703
  Serious: Yes (Other)
  Sender: FDA-Public Use
  Company Number: 08H-163-0313938-00

PATIENT
  Age: 61 Year
  Sex: Male
  Weight: 100 kg

DRUGS (4)
  1. AMIDATE [Suspect]
     Indication: INDUCTION OF ANAESTHESIA
     Dosage: 20 MG INTRACEREBROVENTRICULAR
     Route: 018
  2. ZEMURON [Suspect]
     Indication: INDUCTION OF ANAESTHESIA
     Dosage: 100 MG, INTRACEREBROVENTRICULAR
     Route: 018
  3. 100% OXYGEN (OXYGEN) [Concomitant]
  4. PHENYTOIN [Concomitant]

REACTIONS (11)
  - APNOEA [None]
  - ATRIAL FIBRILLATION [None]
  - CEREBRAL INFARCTION [None]
  - CEREBROVASCULAR SPASM [None]
  - INCORRECT ROUTE OF DRUG ADMINISTRATION [None]
  - LOSS OF CONSCIOUSNESS [None]
  - NEUROLOGICAL EXAMINATION ABNORMAL [None]
  - PAIN [None]
  - REFUSAL OF TREATMENT BY RELATIVE [None]
  - RENAL FAILURE [None]
  - TOXIC EPIDERMAL NECROLYSIS [None]
